FAERS Safety Report 24819490 (Version 1)
Quarter: 2025Q1

REPORT INFORMATION
  Report Type: Spontaneous
  Country: US (occurrence: US)
  Receive Date: 20250108
  Receipt Date: 20250108
  Transmission Date: 20250409
  Serious: Yes (Death)
  Sender: INCYTE
  Company Number: US-002147023-NVSC2025US001348

PATIENT

DRUGS (1)
  1. JAKAFI [Suspect]
     Active Substance: RUXOLITINIB
     Indication: Myelofibrosis
     Route: 065

REACTIONS (2)
  - Myelofibrosis [Fatal]
  - Malignant neoplasm progression [Fatal]
